FAERS Safety Report 17209751 (Version 1)
Quarter: 2019Q4

REPORT INFORMATION
  Report Type: Spontaneous
  Country: CA (occurrence: CA)
  Receive Date: 20191227
  Receipt Date: 20191227
  Transmission Date: 20200122
  Serious: Yes (Other)
  Sender: FDA-Public Use
  Company Number: CA-PFIZER INC-2019554720

PATIENT
  Sex: Female
  Weight: 63 kg

DRUGS (7)
  1. ETANERCEPT [Suspect]
     Active Substance: ETANERCEPT
  2. HUMIRA [Suspect]
     Active Substance: ADALIMUMAB
  3. METHOTREXATE SODIUM. [Suspect]
     Active Substance: METHOTREXATE SODIUM
  4. PREDNISONE. [Suspect]
     Active Substance: PREDNISONE
     Dosage: 10 MG
     Route: 048
  5. SULFASALAZINE. [Suspect]
     Active Substance: SULFASALAZINE
     Dosage: 1 G, 2X/DAY
     Route: 048
  6. ACTEMRA [Suspect]
     Active Substance: TOCILIZUMAB
  7. HYDROXYCHLOROQUINE [Suspect]
     Active Substance: HYDROXYCHLOROQUINE
     Dosage: 200 MG, 1X/DAY
     Route: 048

REACTIONS (7)
  - Treatment failure [Unknown]
  - Arthralgia [Unknown]
  - Inflammation [Unknown]
  - Ill-defined disorder [Unknown]
  - Joint swelling [Unknown]
  - Fibrosis [Unknown]
  - Musculoskeletal stiffness [Unknown]
